FAERS Safety Report 12716913 (Version 1)
Quarter: 2016Q3

REPORT INFORMATION
  Report Type: Spontaneous
  Country: US (occurrence: US)
  Receive Date: 20160906
  Receipt Date: 20160906
  Transmission Date: 20161109
  Serious: Yes (Other)
  Sender: FDA-Public Use
  Company Number: US-PFIZER INC-2016412319

PATIENT
  Age: 61 Year
  Sex: Female
  Weight: 58.96 kg

DRUGS (2)
  1. PLAQUENIL /00072602/ [Concomitant]
     Active Substance: HYDROXYCHLOROQUINE DIPHOSPHATE
     Indication: ARTHRITIS
     Dosage: 200 MG, (2 PILLS)
  2. XELJANZ [Suspect]
     Active Substance: TOFACITINIB CITRATE
     Indication: ARTHRITIS
     Dosage: 5 MG, UNK
     Dates: start: 2016

REACTIONS (7)
  - Abasia [Unknown]
  - Somnolence [Unknown]
  - Depressed mood [Unknown]
  - Rash [Recovered/Resolved]
  - Drug ineffective [Unknown]
  - Decreased appetite [Recovering/Resolving]
  - Weight decreased [Recovering/Resolving]
